FAERS Safety Report 14264615 (Version 12)
Quarter: 2021Q3

REPORT INFORMATION
  Report Type: Report from Study
  Country: FR (occurrence: FR)
  Receive Date: 20171208
  Receipt Date: 20210727
  Transmission Date: 20211014
  Serious: Yes (Hospitalization, Other)
  Sender: FDA-Public Use
  Company Number: FR-PFIZER INC-2017511967

PATIENT
  Sex: Female

DRUGS (34)
  1. DOXORUBICIN HCL [Suspect]
     Active Substance: DOXORUBICIN HYDROCHLORIDE
     Indication: ACUTE LYMPHOCYTIC LEUKAEMIA
     Dosage: 13.2 MG, INJECTION
     Dates: start: 20170523, end: 20170523
  2. DOXORUBICIN HCL [Suspect]
     Active Substance: DOXORUBICIN HYDROCHLORIDE
     Dosage: 14 MG, INJECTION
     Route: 042
     Dates: start: 20170530, end: 20170530
  3. DOXORUBICIN HCL [Suspect]
     Active Substance: DOXORUBICIN HYDROCHLORIDE
     Dosage: 14 MG, INJECTION
     Route: 042
     Dates: start: 20171009, end: 20171009
  4. ONCASPAR [Suspect]
     Active Substance: PEGASPARGASE
     Indication: ACUTE LYMPHOCYTIC LEUKAEMIA
     Dosage: 1350 IU, UNK
     Route: 042
     Dates: start: 20170526, end: 20170526
  5. DEXAMETHASONE. [Suspect]
     Active Substance: DEXAMETHASONE
     Dosage: UNK
     Dates: start: 20170925, end: 20171015
  6. DEXAMETHASONE. [Suspect]
     Active Substance: DEXAMETHASONE
     Dosage: UNK
  7. VINCRISTINE SULFATE. [Suspect]
     Active Substance: VINCRISTINE SULFATE
     Indication: ACUTE LYMPHOCYTIC LEUKAEMIA
     Dosage: 0.8 MG, UNK
     Dates: start: 20170523, end: 20170523
  8. DOXORUBICIN HCL [Suspect]
     Active Substance: DOXORUBICIN HYDROCHLORIDE
     Dosage: 13.2MG, INJECTION
     Dates: start: 20170606, end: 20170606
  9. METHOTREXATE SODIUM. [Suspect]
     Active Substance: METHOTREXATE SODIUM
     Indication: ACUTE LYMPHOCYTIC LEUKAEMIA
     Dosage: 12 MG, UNK
     Route: 037
     Dates: start: 20170101, end: 20170101
  10. METHOTREXATE SODIUM. [Suspect]
     Active Substance: METHOTREXATE SODIUM
     Dosage: 12 MG, UNK
     Route: 037
     Dates: start: 20170928
  11. HYDROCORTISONE. [Suspect]
     Active Substance: HYDROCORTISONE
     Indication: ACUTE LYMPHOCYTIC LEUKAEMIA
     Dosage: 15 MG, UNK
     Route: 037
     Dates: start: 20170303, end: 20171027
  12. VINCRISTINE SULFATE. [Suspect]
     Active Substance: VINCRISTINE SULFATE
     Dosage: 0.8 MG, UNK
     Dates: start: 20170530, end: 20170530
  13. VINCRISTINE SULFATE. [Suspect]
     Active Substance: VINCRISTINE SULFATE
     Dosage: 0.8 MG, UNK
     Dates: start: 20170704, end: 20170704
  14. DOXORUBICIN HCL [Suspect]
     Active Substance: DOXORUBICIN HYDROCHLORIDE
     Dosage: 14 MG, INJECTION
     Route: 042
     Dates: start: 20170523, end: 20170523
  15. METHOTREXATE SODIUM. [Suspect]
     Active Substance: METHOTREXATE SODIUM
     Dosage: UNK
     Route: 037
     Dates: start: 20161107, end: 20171027
  16. ARACYTINE [Suspect]
     Active Substance: CYTARABINE
     Dosage: 25 MG, UNK
     Route: 037
     Dates: start: 201705, end: 201705
  17. ARACYTINE [Suspect]
     Active Substance: CYTARABINE
     Dosage: 30 MG, UNK
     Route: 037
     Dates: start: 20170928, end: 20170928
  18. ARACYTINE [Suspect]
     Active Substance: CYTARABINE
     Dosage: UNK
     Route: 037
     Dates: start: 20170503, end: 20171027
  19. DOXORUBICIN HCL [Suspect]
     Active Substance: DOXORUBICIN HYDROCHLORIDE
     Dosage: 14 MG, INJECTION
     Route: 042
     Dates: start: 20170606, end: 20170606
  20. ONCASPAR [Suspect]
     Active Substance: PEGASPARGASE
     Dosage: 1350 IU, UNK
     Route: 065
     Dates: start: 20170704, end: 20170704
  21. VINCRISTINE SULFATE. [Suspect]
     Active Substance: VINCRISTINE SULFATE
     Dosage: 0.8 MG, UNK
     Dates: start: 20170711, end: 20170711
  22. DOXORUBICIN HCL [Suspect]
     Active Substance: DOXORUBICIN HYDROCHLORIDE
     Dosage: 14.4 MG, INJECTION
     Route: 042
     Dates: start: 20170925, end: 20171009
  23. ONCASPAR [Suspect]
     Active Substance: PEGASPARGASE
     Dosage: 1425 IU, 1X/DAY
     Route: 042
     Dates: start: 20170928, end: 20170928
  24. 6?MERCAPTOPURINE MONOHYDRATE [Suspect]
     Active Substance: MERCAPTOPURINE
     Indication: ACUTE LYMPHOCYTIC LEUKAEMIA
     Dosage: UNK
  25. DEXAMETHASONE. [Suspect]
     Active Substance: DEXAMETHASONE
     Indication: ACUTE LYMPHOCYTIC LEUKAEMIA
     Dosage: 5 MG, UNK
     Route: 048
     Dates: start: 20161112, end: 20171016
  26. DEXAMETHASONE. [Suspect]
     Active Substance: DEXAMETHASONE
     Dosage: 42 MG, UNK
     Dates: start: 20170909, end: 20171015
  27. ARACYTINE [Suspect]
     Active Substance: CYTARABINE
     Indication: ACUTE LYMPHOCYTIC LEUKAEMIA
     Dosage: 30 MG, UNK
     Route: 037
     Dates: start: 2017, end: 2017
  28. ARACYTINE [Suspect]
     Active Substance: CYTARABINE
     Dosage: UNK
  29. VINCRISTINE SULFATE. [Suspect]
     Active Substance: VINCRISTINE SULFATE
     Dosage: 0.8 MG, UNK
     Dates: start: 20170606, end: 20170606
  30. VINCRISTINE SULFATE. [Suspect]
     Active Substance: VINCRISTINE SULFATE
     Dosage: 0.88 MG, 1X/DAY
     Dates: start: 20170925, end: 20171009
  31. DOXORUBICIN HCL [Suspect]
     Active Substance: DOXORUBICIN HYDROCHLORIDE
     Dosage: 13.2 MG, INJECTION
     Dates: start: 20170530, end: 20170530
  32. METHOTREXATE SODIUM. [Suspect]
     Active Substance: METHOTREXATE SODIUM
     Dosage: 10 MG, UNK
     Route: 037
     Dates: start: 201705, end: 201705
  33. HYDROCORTISONE. [Suspect]
     Active Substance: HYDROCORTISONE
     Dosage: 15 MG, 1X/DAY
     Route: 037
     Dates: start: 20170928, end: 20170928
  34. CYCLOPHOSPHAMIDE. [Suspect]
     Active Substance: CYCLOPHOSPHAMIDE
     Indication: ACUTE LYMPHOCYTIC LEUKAEMIA
     Dosage: 540 MG, UNK
     Dates: start: 20170620, end: 20170620

REACTIONS (2)
  - Febrile bone marrow aplasia [Unknown]
  - Hyperlipidaemia [Recovered/Resolved]

NARRATIVE: CASE EVENT DATE: 20171019
